FAERS Safety Report 13949677 (Version 2)
Quarter: 2017Q4

REPORT INFORMATION
  Report Type: Spontaneous
  Country: US (occurrence: US)
  Receive Date: 20170908
  Receipt Date: 20171120
  Transmission Date: 20180320
  Serious: Yes (Hospitalization, Other)
  Sender: FDA-Public Use
  Company Number: US-COVIS PHARMA B.V.-2017COV00317

PATIENT
  Age: 78 Year
  Sex: Male

DRUGS (4)
  1. XTANDI [Suspect]
     Active Substance: ENZALUTAMIDE
     Dosage: 40 MG, 4X/DAY
     Route: 048
  2. OMEPRAZOLE MAGNESIUM. [Suspect]
     Active Substance: OMEPRAZOLE MAGNESIUM
     Indication: GASTRIC ULCER
     Dosage: 20 MG, 1X/DAY
     Route: 048
  3. OMEPRAZOLE MAGNESIUM. [Suspect]
     Active Substance: OMEPRAZOLE MAGNESIUM
     Indication: NAUSEA
  4. GEMFIBROZIL. [Suspect]
     Active Substance: GEMFIBROZIL
     Indication: BLOOD CHOLESTEROL
     Dosage: 600 MG, 2X/DAY

REACTIONS (6)
  - Gastric haemorrhage [Recovering/Resolving]
  - Weight decreased [Recovering/Resolving]
  - Drug interaction [Recovering/Resolving]
  - Blood potassium decreased [Unknown]
  - Fatigue [Recovering/Resolving]
  - Nausea [Recovering/Resolving]

NARRATIVE: CASE EVENT DATE: 20170303
